FAERS Safety Report 11335933 (Version 1)
Quarter: 2015Q3

REPORT INFORMATION
  Report Type: Spontaneous
  Country: US (occurrence: None)
  Receive Date: 20150731
  Receipt Date: 20150731
  Transmission Date: 20151125
  Serious: Yes (Hospitalization)
  Sender: FDA-Public Use
  Company Number: None

PATIENT
  Age: 83 Year
  Sex: Male
  Weight: 82.4 kg

DRUGS (1)
  1. WARFARIN [Suspect]
     Active Substance: WARFARIN
     Indication: ATRIAL FIBRILLATION
     Dosage: MG
     Route: 048
     Dates: start: 19951214, end: 20130518

REACTIONS (4)
  - International normalised ratio increased [None]
  - Abdominal wall haematoma [None]
  - Haemorrhage [None]
  - Fall [None]

NARRATIVE: CASE EVENT DATE: 20130518
